FAERS Safety Report 6458751-3 (Version None)
Quarter: 2009Q4

REPORT INFORMATION
  Report Type: 
  Country: None (occurrence: None)
  Receive Date: 20091127
  Receipt Date: 20091117
  Transmission Date: 20100525
  Serious: Yes (Other)
  Sender: FDA-Public Use
  Company Number: PT-ROCHE-669995

PATIENT
  Age: 88 Year
  Sex: Female
  Weight: 72 kg

DRUGS (3)
  1. XELODA [Suspect]
     Indication: BREAST NEOPLASM
     Dosage: DOSE REPORTED AS 3 TABLETS OF 500 MG FREQUENCY:IN THE MORNING AND IN THE EVENING
     Route: 065
     Dates: start: 20070813
  2. XELODA [Suspect]
     Dosage: DOSE REPORTED AS 3 TABLETS OF 500 MG FREQUENCY:IN THE MORNING AND IN THE EVENING
     Route: 065
     Dates: start: 20070818, end: 20090601
  3. LETROZOLE [Concomitant]
     Dosage: PER DAY IN THE EVENING BEFORE GOING TO BED.

REACTIONS (3)
  - DECREASED APPETITE [None]
  - SWOLLEN TONGUE [None]
  - TONGUE DISCOLOURATION [None]
